FAERS Safety Report 5545376-7 (Version None)
Quarter: 2007Q4

REPORT INFORMATION
  Report Type: 
  Country: None (occurrence: None)
  Receive Date: 20071206
  Receipt Date: 20070921
  Transmission Date: 20080405
  Serious: Yes (Death)
  Sender: FDA-Public Use
  Company Number: 2007SP019535

PATIENT
  Age: 87 Year
  Sex: Female
  Weight: 38 kg

DRUGS (7)
  1. BETAMETHASONE SODIUM PHOSPHATE [Suspect]
     Indication: GLIOBLASTOMA MULTIFORME
     Dosage: INDRP
     Route: 018
     Dates: start: 20070115, end: 20070319
  2. TEMODAL [Suspect]
     Indication: GLIOBLASTOMA MULTIFORME
     Dosage: 100 MG/M2;QD;PO
     Route: 048
     Dates: start: 20070213, end: 20070213
  3. FAMOTIDINE [Concomitant]
  4. PHENOBAL [Concomitant]
  5. KYTRIL [Concomitant]
  6. PARAPLATIN [Concomitant]
  7. OMEPRAL [Concomitant]

REACTIONS (9)
  - C-REACTIVE PROTEIN INCREASED [None]
  - DIABETIC HYPEROSMOLAR COMA [None]
  - HYPERGLYCAEMIA [None]
  - HYPERNATRAEMIA [None]
  - HYPOALBUMINAEMIA [None]
  - NEOPLASM PROGRESSION [None]
  - ORAL INTAKE REDUCED [None]
  - PNEUMONIA [None]
  - WHITE BLOOD CELL COUNT INCREASED [None]
